FAERS Safety Report 11911287 (Version 2)
Quarter: 2016Q3

REPORT INFORMATION
  Report Type: Spontaneous
  Country: US (occurrence: US)
  Receive Date: 20160112
  Receipt Date: 20160822
  Transmission Date: 20161109
  Serious: Yes (Death, Other)
  Sender: FDA-Public Use
  Company Number: US-ELI_LILLY_AND_COMPANY-US201601000975

PATIENT
  Sex: Female

DRUGS (2)
  1. CYMBALTA [Suspect]
     Active Substance: DULOXETINE HYDROCHLORIDE
     Indication: DEPRESSION
  2. CYMBALTA [Suspect]
     Active Substance: DULOXETINE HYDROCHLORIDE
     Indication: PAIN
     Dosage: UNK, UNKNOWN
     Route: 065

REACTIONS (16)
  - Suicidal ideation [Unknown]
  - Irritability [Unknown]
  - Insomnia [Unknown]
  - Apathy [Unknown]
  - Paraesthesia [Unknown]
  - Neuralgia [Unknown]
  - Sleep disorder [Unknown]
  - Dizziness [Unknown]
  - Nightmare [Unknown]
  - Vertigo [Unknown]
  - Death [Fatal]
  - Nausea [Unknown]
  - Mood swings [Unknown]
  - Visual impairment [Unknown]
  - Agitation [Unknown]
  - Drug withdrawal syndrome [Unknown]
